FAERS Safety Report 9542381 (Version 1)
Quarter: 2013Q3

REPORT INFORMATION
  Report Type: Spontaneous
  Country: US (occurrence: US)
  Receive Date: 20130923
  Receipt Date: 20130923
  Transmission Date: 20140515
  Serious: No
  Sender: FDA-Public Use
  Company Number: US-BAYER-2013-114815

PATIENT
  Sex: Male

DRUGS (2)
  1. ALEVE TABLET [Suspect]
     Indication: HEADACHE
     Dosage: MORE THAN 5, ONCE
     Route: 048
  2. ALEVE TABLET [Suspect]
     Indication: HEADACHE
     Dosage: 5 DF, ONCE
     Route: 048

REACTIONS (2)
  - Extra dose administered [None]
  - Abdominal pain upper [Not Recovered/Not Resolved]
